FAERS Safety Report 25731013 (Version 2)
Quarter: 2025Q3

REPORT INFORMATION
  Report Type: Spontaneous
  Country: EU (occurrence: EU)
  Receive Date: 20250827
  Receipt Date: 20250904
  Transmission Date: 20251020
  Serious: Yes (Life-Threatening)
  Sender: MYLAN
  Company Number: None

PATIENT
  Age: 4 Year
  Sex: Female
  Weight: 14 kg

DRUGS (28)
  1. DEXAMETHASONE [Suspect]
     Active Substance: DEXAMETHASONE
     Indication: Product used for unknown indication
     Dates: start: 20250730, end: 20250730
  2. DEXAMETHASONE [Suspect]
     Active Substance: DEXAMETHASONE
     Route: 042
     Dates: start: 20250730, end: 20250730
  3. DEXAMETHASONE [Suspect]
     Active Substance: DEXAMETHASONE
     Route: 042
     Dates: start: 20250730, end: 20250730
  4. DEXAMETHASONE [Suspect]
     Active Substance: DEXAMETHASONE
     Dates: start: 20250730, end: 20250730
  5. SUFENTANIL [Suspect]
     Active Substance: SUFENTANIL
     Indication: Analgesic therapy
     Dates: start: 20250730, end: 20250730
  6. SUFENTANIL [Suspect]
     Active Substance: SUFENTANIL
     Route: 042
     Dates: start: 20250730, end: 20250730
  7. SUFENTANIL [Suspect]
     Active Substance: SUFENTANIL
     Route: 042
     Dates: start: 20250730, end: 20250730
  8. SUFENTANIL [Suspect]
     Active Substance: SUFENTANIL
     Dates: start: 20250730, end: 20250730
  9. CHLORHEXIDINE [Suspect]
     Active Substance: CHLORHEXIDINE
     Indication: Infection prophylaxis
     Dates: start: 20250730, end: 20250730
  10. CHLORHEXIDINE [Suspect]
     Active Substance: CHLORHEXIDINE
     Route: 003
     Dates: start: 20250730, end: 20250730
  11. CHLORHEXIDINE [Suspect]
     Active Substance: CHLORHEXIDINE
     Route: 003
     Dates: start: 20250730, end: 20250730
  12. CHLORHEXIDINE [Suspect]
     Active Substance: CHLORHEXIDINE
     Dates: start: 20250730, end: 20250730
  13. SEVOFLURANE [Suspect]
     Active Substance: SEVOFLURANE
     Indication: Induction of anaesthesia
     Dates: start: 20250730, end: 20250730
  14. SEVOFLURANE [Suspect]
     Active Substance: SEVOFLURANE
     Route: 055
     Dates: start: 20250730, end: 20250730
  15. SEVOFLURANE [Suspect]
     Active Substance: SEVOFLURANE
     Route: 055
     Dates: start: 20250730, end: 20250730
  16. SEVOFLURANE [Suspect]
     Active Substance: SEVOFLURANE
     Dates: start: 20250730, end: 20250730
  17. KETAMINE [Suspect]
     Active Substance: KETAMINE
     Indication: Induction of anaesthesia
     Dates: start: 20250730, end: 20250730
  18. KETAMINE [Suspect]
     Active Substance: KETAMINE
     Route: 042
     Dates: start: 20250730, end: 20250730
  19. KETAMINE [Suspect]
     Active Substance: KETAMINE
     Route: 042
     Dates: start: 20250730, end: 20250730
  20. KETAMINE [Suspect]
     Active Substance: KETAMINE
     Dates: start: 20250730, end: 20250730
  21. ACETAMINOPHEN [Suspect]
     Active Substance: ACETAMINOPHEN
     Indication: Analgesic therapy
     Dates: start: 20250730, end: 20250730
  22. ACETAMINOPHEN [Suspect]
     Active Substance: ACETAMINOPHEN
     Route: 042
     Dates: start: 20250730, end: 20250730
  23. ACETAMINOPHEN [Suspect]
     Active Substance: ACETAMINOPHEN
     Route: 042
     Dates: start: 20250730, end: 20250730
  24. ACETAMINOPHEN [Suspect]
     Active Substance: ACETAMINOPHEN
     Dates: start: 20250730, end: 20250730
  25. KENACORT [Suspect]
     Active Substance: TRIAMCINOLONE
     Indication: Scar
     Dates: start: 20250730, end: 20250730
  26. KENACORT [Suspect]
     Active Substance: TRIAMCINOLONE
     Route: 023
     Dates: start: 20250730, end: 20250730
  27. KENACORT [Suspect]
     Active Substance: TRIAMCINOLONE
     Route: 023
     Dates: start: 20250730, end: 20250730
  28. KENACORT [Suspect]
     Active Substance: TRIAMCINOLONE
     Dates: start: 20250730, end: 20250730

REACTIONS (1)
  - Anaphylactic reaction [Recovered/Resolved]

NARRATIVE: CASE EVENT DATE: 20250730
